FAERS Safety Report 10620234 (Version 2)
Quarter: 2016Q2

REPORT INFORMATION
  Report Type: Spontaneous
  Country: US (occurrence: US)
  Receive Date: 20141202
  Receipt Date: 20160426
  Transmission Date: 20160815
  Serious: Yes (Hospitalization, Other)
  Sender: FDA-Public Use
  Company Number: US-B.I. PHARMACEUTICALS,INC./RIDGEFIELD-2014-BI-57132BP

PATIENT
  Age: 73 Year
  Sex: Female

DRUGS (1)
  1. SPIRIVA [Suspect]
     Active Substance: TIOTROPIUM BROMIDE MONOHYDRATE
     Indication: CHRONIC OBSTRUCTIVE PULMONARY DISEASE
     Dosage: 18 MCG
     Route: 055
     Dates: start: 2003, end: 201506

REACTIONS (12)
  - Bone contusion [Unknown]
  - Throat irritation [Unknown]
  - Cardiac failure congestive [Unknown]
  - Fall [Recovered/Resolved]
  - Dyspnoea [Unknown]
  - Balance disorder [Recovered/Resolved]
  - Sinusitis [Not Recovered/Not Resolved]
  - Pneumonia [Unknown]
  - Heart rate irregular [Unknown]
  - Malaise [Unknown]
  - Oropharyngeal pain [Not Recovered/Not Resolved]
  - Cardiac failure congestive [Unknown]

NARRATIVE: CASE EVENT DATE: 2014
